FAERS Safety Report 17166596 (Version 1)
Quarter: 2019Q4

REPORT INFORMATION
  Report Type: Spontaneous
  Country: FR (occurrence: FR)
  Receive Date: 20191217
  Receipt Date: 20191217
  Transmission Date: 20200122
  Serious: Yes (Other)
  Sender: FDA-Public Use
  Company Number: FR-ELI_LILLY_AND_COMPANY-FR201912003926

PATIENT
  Age: 83 Year
  Sex: Female
  Weight: 40 kg

DRUGS (2)
  1. FORSTEO [Suspect]
     Active Substance: TERIPARATIDE
     Indication: OSTEOPOROSIS
     Dosage: UNK, UNKNOWN
     Route: 058
  2. HYDROCORTISONE. [Suspect]
     Active Substance: HYDROCORTISONE
     Indication: CLUSTER HEADACHE
     Dosage: 20 MG, DAILY
     Route: 048

REACTIONS (1)
  - Clonus [Not Recovered/Not Resolved]

NARRATIVE: CASE EVENT DATE: 2019
